FAERS Safety Report 22320425 (Version 1)
Quarter: 2023Q2

REPORT INFORMATION
  Report Type: Spontaneous
  Country: US (occurrence: US)
  Receive Date: 20230515
  Receipt Date: 20230515
  Transmission Date: 20230722
  Serious: Yes (Hospitalization)
  Sender: FDA-Public Use
  Company Number: US-AMGEN-USASP2023081497

PATIENT
  Age: 59 Year
  Sex: Female

DRUGS (1)
  1. CINACALCET HYDROCHLORIDE [Suspect]
     Active Substance: CINACALCET HYDROCHLORIDE
     Indication: Hyperparathyroidism primary
     Dosage: 90 MILLIGRAM, BID
     Route: 065

REACTIONS (5)
  - Hungry bone syndrome [Recovered/Resolved]
  - Acute respiratory failure [Unknown]
  - Shock [Unknown]
  - Acute kidney injury [Unknown]
  - Drug ineffective [Unknown]
